FAERS Safety Report 22016249 (Version 2)
Quarter: 2023Q2

REPORT INFORMATION
  Report Type: Spontaneous
  Country: BR (occurrence: None)
  Receive Date: 20230221
  Receipt Date: 20230503
  Transmission Date: 20230721
  Serious: Yes (Other)
  Sender: FDA-Public Use
  Company Number: BR-ROCHE-3290120

PATIENT
  Sex: Male
  Weight: 105 kg

DRUGS (6)
  1. RIVOTRIL [Suspect]
     Active Substance: CLONAZEPAM
     Indication: Anxiety
     Dosage: 0.5MG SINCE 2014, WITH A DOSAGE OF 2 TO 3 TABLETS (ACCORDING TO NEED)
     Route: 048
     Dates: start: 2014
  2. RIVOTRIL [Suspect]
     Active Substance: CLONAZEPAM
     Indication: Panic disorder
     Dosage: BIOPAS PACKAGING
     Route: 048
     Dates: start: 202211
  3. RIVOTRIL [Suspect]
     Active Substance: CLONAZEPAM
     Route: 048
     Dates: start: 20230207
  4. RIVOTRIL [Suspect]
     Active Substance: CLONAZEPAM
     Route: 048
     Dates: start: 202303
  5. RIVOTRIL [Suspect]
     Active Substance: CLONAZEPAM
     Dosage: 1 TABLET OF 0.25 MG RIVOTRIL 2 TIME A WEEK
     Route: 060
     Dates: start: 202303
  6. DULOXETINE [Concomitant]
     Active Substance: DULOXETINE
     Indication: Anxiety
     Dosage: 1 DOSAGE FORM IN 1 DAY
     Route: 048
     Dates: start: 2021

REACTIONS (6)
  - Drug ineffective [Unknown]
  - Dizziness [Recovered/Resolved]
  - Hypothyroidism [Not Recovered/Not Resolved]
  - Blood cholesterol increased [Not Recovered/Not Resolved]
  - Drug tolerance [Not Recovered/Not Resolved]
  - Intentional product use issue [Unknown]

NARRATIVE: CASE EVENT DATE: 20200101
